FAERS Safety Report 23379265 (Version 9)
Quarter: 2024Q4

REPORT INFORMATION
  Report Type: Report from Study
  Country: GB (occurrence: GB)
  Receive Date: 20240108
  Receipt Date: 20241001
  Transmission Date: 20250115
  Serious: Yes (Other)
  Sender: ABBVIE
  Company Number: GB-ABBVIE-5572282

PATIENT
  Age: 71 Year
  Sex: Male

DRUGS (9)
  1. CARBIDOPA\LEVODOPA [Suspect]
     Active Substance: CARBIDOPA\LEVODOPA
     Indication: Parkinson^s disease
     Dosage: CR: 4.4ML, ED:2.5MLS?20MGS/5MGS; CR: 4.2ML, ED:2.5MLS
     Route: 050
     Dates: end: 202312
  2. CARBIDOPA\LEVODOPA [Suspect]
     Active Substance: CARBIDOPA\LEVODOPA
     Dosage: CR: 4.2ML, ED:2.5MLS
     Route: 050
     Dates: start: 202312, end: 20240124
  3. CARBIDOPA\LEVODOPA [Suspect]
     Active Substance: CARBIDOPA\LEVODOPA
     Dosage: MD: 12.4, CONTINUOUS RATE 4.6MLS, EXTRA DOSE 2.5MLS- USING 2/3 A DAY;?STOP DATE: 2024
     Route: 050
     Dates: start: 20240125
  4. CARBIDOPA\LEVODOPA [Suspect]
     Active Substance: CARBIDOPA\LEVODOPA
     Dosage: MD: 12.2, CR: 4.4,  ED:2.5, 20MG/5MG
     Route: 050
     Dates: start: 2024
  5. SINEMET CR [Concomitant]
     Active Substance: CARBIDOPA\LEVODOPA
     Indication: Product used for unknown indication
     Dosage: 50/200 MG,?FREQUENCY: INTO 1 AT 0700, 2300
  6. SAFINAMIDE [Concomitant]
     Active Substance: SAFINAMIDE
     Indication: Product used for unknown indication
     Dosage: FREQUENCY: INTO 1 ON
  7. BENSERAZIDE HYDROCHLORIDE\LEVODOPA [Concomitant]
     Active Substance: BENSERAZIDE HYDROCHLORIDE\LEVODOPA
     Indication: Product used for unknown indication
     Dosage: 25/100 MG INTO 1,?FREQUENCY: 0700
  8. OPICAPONE [Concomitant]
     Active Substance: OPICAPONE
     Indication: Product used for unknown indication
     Dosage: FREQUENCY: INTO 1 ON
  9. CARBIDOPA\LEVODOPA [Concomitant]
     Active Substance: CARBIDOPA\LEVODOPA
     Indication: Product used for unknown indication
     Dosage: 25/100 MGS X2?FREQUENCY TEXT: 08.00, 11.00 AM, 14.00, 17.00, 20.00PM

REACTIONS (21)
  - Cataract [Unknown]
  - Dyspnoea [Not Recovered/Not Resolved]
  - On and off phenomenon [Recovered/Resolved]
  - Fall [Not Recovered/Not Resolved]
  - Dyskinesia [Unknown]
  - Weight decreased [Unknown]
  - Muscle rigidity [Unknown]
  - Memory impairment [Unknown]
  - Dystonia [Not Recovered/Not Resolved]
  - Device dislocation [Recovered/Resolved]
  - Parkinsonian gait [Unknown]
  - Device leakage [Not Recovered/Not Resolved]
  - Hallucination [Not Recovered/Not Resolved]
  - Balance disorder [Unknown]
  - On and off phenomenon [Unknown]
  - Device dislocation [Recovering/Resolving]
  - Device breakage [Unknown]
  - Mobility decreased [Not Recovered/Not Resolved]
  - Device issue [Not Recovered/Not Resolved]
  - Device issue [Recovered/Resolved]
  - Device occlusion [Recovered/Resolved]

NARRATIVE: CASE EVENT DATE: 20240101
